FAERS Safety Report 4357266-6 (Version None)
Quarter: 2004Q2

REPORT INFORMATION
  Report Type: 
  Country: None (occurrence: None)
  Receive Date: 20040506
  Receipt Date: 20040428
  Transmission Date: 20050107
  Serious: Yes (Hospitalization)
  Sender: FDA-Public Use
  Company Number: TPA2004A00522

PATIENT
  Age: 38 Year
  Sex: Male
  Weight: 226.7985 kg

DRUGS (4)
  1. ACTOS [Suspect]
     Indication: DIABETES MELLITUS NON-INSULIN-DEPENDENT
     Dosage: 45 MG, QPM, PER ORAL
     Route: 048
  2. METFORMIN HCL [Concomitant]
  3. WELLBUTRIN [Concomitant]
  4. NEURONTIN [Concomitant]

REACTIONS (1)
  - NEPHROLITHIASIS [None]
